FAERS Safety Report 25837401 (Version 1)
Quarter: 2025Q3

REPORT INFORMATION
  Report Type: Spontaneous
  Country: US (occurrence: None)
  Receive Date: 20250923
  Receipt Date: 20250923
  Transmission Date: 20251020
  Serious: Yes (Hospitalization)
  Sender: FDA-CTU
  Company Number: None

PATIENT
  Sex: Female

DRUGS (11)
  1. RINVOQ [Suspect]
     Active Substance: UPADACITINIB
     Indication: Rheumatoid arthritis
     Dosage: TAKE 1 TABLET BY MOUTH EVERY DAY
     Route: 048
     Dates: start: 20250801
  2. AMLODIPINE [Concomitant]
     Active Substance: AMLODIPINE BESYLATE
  3. AZITHROMYCIN [Concomitant]
     Active Substance: AZITHROMYCIN
  4. DESVENLAFAX TAB 100MG ER [Concomitant]
  5. DICLOFENAC TAB 50MG DR [Concomitant]
  6. FLUCONAZOLE TAB 150MG [Concomitant]
  7. FLUTICASONE [Concomitant]
     Active Substance: FLUTICASONE
  8. HYDROCHLOROT TAB 25MG [Concomitant]
  9. HYDROXYCHLOROQUINE [Concomitant]
     Active Substance: HYDROXYCHLOROQUINE
  10. METFORMIN TAB 500MG ER [Concomitant]
  11. METHOCARBAM TAB 750MG [Concomitant]

REACTIONS (7)
  - Pulmonary embolism [None]
  - Infection [None]
  - Gait disturbance [None]
  - Tremor [None]
  - Hyperhidrosis [None]
  - Rheumatoid arthritis [None]
  - Colitis ulcerative [None]
